FAERS Safety Report 6027785-5 (Version None)
Quarter: 2009Q1

REPORT INFORMATION
  Report Type: 
  Country: None (occurrence: None)
  Receive Date: 20090105
  Receipt Date: 20081223
  Transmission Date: 20090719
  Serious: Yes (Hospitalization, Disabling, Other)
  Sender: FDA-Public Use
  Company Number: JP-ROXANE LABORATORIES, INC.-2008-RO-00464RO

PATIENT
  Age: 81 Year
  Sex: Female
  Weight: 45 kg

DRUGS (8)
  1. THEOPHYLLINE [Suspect]
     Indication: BRONCHITIS CHRONIC
     Dosage: 400MG
  2. DIAZEPAM [Suspect]
     Indication: CONVULSION
  3. ANTITUSSIVE [Suspect]
     Indication: BRONCHITIS CHRONIC
  4. PHENYTOIN [Suspect]
     Indication: CONVULSION
  5. AMINOPHYLLINE [Suspect]
     Indication: BRONCHITIS CHRONIC
     Route: 042
  6. VALPROIC ACID [Concomitant]
     Dosage: 600MG
  7. VITAMIN B PREPARATION [Concomitant]
     Indication: VITAMIN B6 DEFICIENCY
     Route: 042
  8. VITAMIN B PREPARATION [Concomitant]

REACTIONS (9)
  - BLOOD CREATINE PHOSPHOKINASE INCREASED [None]
  - CONVULSION [None]
  - ENCEPHALOPATHY [None]
  - ENTERITIS [None]
  - PARALYSIS [None]
  - PARALYSIS FLACCID [None]
  - SINUS TACHYCARDIA [None]
  - STATUS EPILEPTICUS [None]
  - VITAMIN B6 DECREASED [None]
